FAERS Safety Report 6070270-5 (Version None)
Quarter: 2009Q1

REPORT INFORMATION
  Report Type: 
  Country: None (occurrence: None)
  Receive Date: 20090203
  Receipt Date: 20090112
  Transmission Date: 20090719
  Serious: Yes (Life-Threatening, Other)
  Sender: FDA-Public Use
  Company Number: 2009S1000552

PATIENT
  Age: 9 Year
  Sex: Male

DRUGS (1)
  1. CLONAZEPAM [Suspect]
     Indication: BLEPHAROSPASM
     Dosage: 1.5 MG; DAILY;

REACTIONS (5)
  - ANGER [None]
  - DISINHIBITION [None]
  - INTENTIONAL SELF-INJURY [None]
  - IRRITABILITY [None]
  - SUICIDAL IDEATION [None]
